FAERS Safety Report 18035551 (Version 1)
Quarter: 2020Q3

REPORT INFORMATION
  Report Type: Spontaneous
  Country: US (occurrence: US)
  Receive Date: 20200715
  Receipt Date: 20200715
  Transmission Date: 20201103
  Serious: No
  Sender: FDA-Public Use
  Company Number: None

PATIENT

DRUGS (2)
  1. REMDESIVIR  INJECTION [Suspect]
     Active Substance: REMDESIVIR
     Dosage: POWDER FOR RECONSTITUTION
     Route: 042
  2. REMDESIVIR INJECTION [Suspect]
     Active Substance: REMDESIVIR
     Route: 042

REACTIONS (4)
  - Product use complaint [None]
  - Product administration error [None]
  - Physical product label issue [None]
  - Product label confusion [None]
